FAERS Safety Report 12646475 (Version 1)
Quarter: 2016Q3

REPORT INFORMATION
  Report Type: Spontaneous
  Country: DE (occurrence: DE)
  Receive Date: 20160812
  Receipt Date: 20160812
  Transmission Date: 20161109
  Serious: Yes (Other)
  Sender: FDA-Public Use
  Company Number: DE-009507513-1608DEU006024

PATIENT
  Sex: Female

DRUGS (1)
  1. PUREGON [Suspect]
     Active Substance: FOLLITROPIN

REACTIONS (1)
  - Mental disorder [Unknown]
